FAERS Safety Report 5686592-3 (Version None)
Quarter: 2008Q1

REPORT INFORMATION
  Report Type: 
  Country: None (occurrence: None)
  Receive Date: 20080328
  Receipt Date: 20070508
  Transmission Date: 20080703
  Serious: No
  Sender: FDA-Public Use
  Company Number: US-BAYER-US-2007-016510

PATIENT
  Age: 42 Year
  Sex: Female
  Weight: 73 kg

DRUGS (1)
  1. MIRENA [Suspect]
     Indication: CONTRACEPTION
     Route: 015
     Dates: start: 20070227, end: 20070505

REACTIONS (9)
  - FATIGUE [None]
  - HEADACHE [None]
  - LYMPHADENOPATHY [None]
  - METRORRHAGIA [None]
  - MOOD ALTERED [None]
  - PHARYNGOLARYNGEAL PAIN [None]
  - PROCEDURAL PAIN [None]
  - PYREXIA [None]
  - VAGINAL INFECTION [None]
